FAERS Safety Report 21861642 (Version 2)
Quarter: 2023Q1

REPORT INFORMATION
  Report Type: Spontaneous
  Country: IT (occurrence: IT)
  Receive Date: 20230113
  Receipt Date: 20230118
  Transmission Date: 20230417
  Serious: Yes (Death, Hospitalization, Other)
  Sender: FDA-Public Use
  Company Number: IT-009507513-2301ITA003662

PATIENT
  Age: 80 Year
  Sex: Male

DRUGS (1)
  1. PEMBROLIZUMAB [Suspect]
     Active Substance: PEMBROLIZUMAB
     Indication: Nodular melanoma
     Dosage: UNK

REACTIONS (1)
  - Immune-mediated myocarditis [Fatal]
